FAERS Safety Report 19780745 (Version 4)
Quarter: 2024Q2

REPORT INFORMATION
  Report Type: Spontaneous
  Country: NL (occurrence: NL)
  Receive Date: 20210902
  Receipt Date: 20240621
  Transmission Date: 20240715
  Serious: Yes (Other)
  Sender: FDA-Public Use
  Company Number: NL-NOVA LABORATORIES LIMITED-2117943

PATIENT
  Age: 45 Year
  Sex: Male

DRUGS (4)
  1. PURIXAN [Suspect]
     Active Substance: MERCAPTOPURINE
     Indication: Colitis ulcerative
     Dates: start: 20160801, end: 20170106
  2. BUDESONIDE [Suspect]
     Active Substance: BUDESONIDE
     Dates: start: 20160712, end: 20161016
  3. INFLIXIMAB [Suspect]
     Active Substance: INFLIXIMAB
     Route: 042
     Dates: start: 20160802, end: 20161016
  4. REMICADE [Suspect]
     Active Substance: INFLIXIMAB
     Route: 042
     Dates: start: 20160802, end: 20161016

REACTIONS (2)
  - Basal cell carcinoma [Not Recovered/Not Resolved]
  - Off label use [Unknown]

NARRATIVE: CASE EVENT DATE: 20160801
